FAERS Safety Report 6177203-1 (Version None)
Quarter: 2009Q2

REPORT INFORMATION
  Report Type: 
  Country: None (occurrence: None)
  Receive Date: 20090430
  Receipt Date: 20090430
  Transmission Date: 20091009
  Serious: Yes (Other)
  Sender: FDA-Public Use
  Company Number: None

PATIENT
  Age: 65 Year
  Sex: Female
  Weight: 58.9676 kg

DRUGS (1)
  1. BONIVA [Suspect]
     Indication: OSTEOPENIA
     Dosage: 150 MONTHLY PO
     Route: 048
     Dates: start: 20071027, end: 20090327

REACTIONS (5)
  - HYPOAESTHESIA [None]
  - MUSCULAR WEAKNESS [None]
  - NERVE COMPRESSION [None]
  - OSTEOARTHRITIS [None]
  - SYNOVIAL CYST [None]
